FAERS Safety Report 7335004-2 (Version None)
Quarter: 2011Q1

REPORT INFORMATION
  Report Type: 
  Country: None (occurrence: None)
  Receive Date: 20110307
  Receipt Date: 20110224
  Transmission Date: 20110831
  Serious: Yes (Other)
  Sender: FDA-Public Use
  Company Number: BR-BAXTER-2011BH004768

PATIENT

DRUGS (4)
  1. DIPHENHYDRAMINE [Concomitant]
     Indication: PREMEDICATION
  2. HYDROCORTISONE [Concomitant]
     Indication: PREMEDICATION
  3. GAMMAGARD LIQUID [Suspect]
     Indication: OFF LABEL USE
     Route: 065
  4. GAMMAGARD LIQUID [Suspect]
     Indication: SYSTEMIC LUPUS ERYTHEMATOSUS
     Route: 065

REACTIONS (1)
  - LARYNGEAL OEDEMA [None]
